FAERS Safety Report 23402586 (Version 1)
Quarter: 2024Q1

REPORT INFORMATION
  Report Type: Spontaneous
  Country: CN (occurrence: CN)
  Receive Date: 20240115
  Receipt Date: 20240115
  Transmission Date: 20240410
  Serious: Yes (Other)
  Sender: FDA-Public Use
  Company Number: CN-009507513-2401CHN006556

PATIENT
  Age: 50 Year
  Sex: Male

DRUGS (3)
  1. KEYTRUDA [Suspect]
     Active Substance: PEMBROLIZUMAB
     Indication: Targeted cancer therapy
     Dosage: 200 MG, EVERY 21 DAYS
     Route: 041
     Dates: start: 20231130, end: 20231130
  2. PACLITAXEL [Suspect]
     Active Substance: PACLITAXEL
     Indication: Targeted cancer therapy
     Dosage: UNK
     Dates: start: 20231130
  3. NEDAPLATIN [Suspect]
     Active Substance: NEDAPLATIN
     Indication: Targeted cancer therapy
     Dosage: UNK
     Dates: start: 20231130

REACTIONS (3)
  - Urticaria [Recovering/Resolving]
  - Immune-mediated adverse reaction [Recovering/Resolving]
  - Sleep disorder [Unknown]

NARRATIVE: CASE EVENT DATE: 20231204
